FAERS Safety Report 23591818 (Version 1)
Quarter: 2024Q1

REPORT INFORMATION
  Report Type: Spontaneous
  Country: GB (occurrence: GB)
  Receive Date: 20240304
  Receipt Date: 20240304
  Transmission Date: 20240410
  Serious: Yes (Other)
  Sender: FDA-Public Use
  Company Number: GB-OTSUKA-2024_005196

PATIENT
  Age: 67 Year
  Sex: Male

DRUGS (2)
  1. ABILIFY MAINTENA [Suspect]
     Active Substance: ARIPIPRAZOLE
     Indication: Bipolar disorder
     Dosage: 400 MG (ABOUT 8-10 YEARS)
     Route: 065
  2. ABILIFY [Suspect]
     Active Substance: ARIPIPRAZOLE
     Indication: Bipolar disorder
     Dosage: UNK
     Route: 048

REACTIONS (6)
  - Hip fracture [Unknown]
  - Hallucination, auditory [Unknown]
  - Fall [Unknown]
  - Asthenia [Unknown]
  - Therapy change [Unknown]
  - Product use in unapproved indication [Unknown]
